FAERS Safety Report 8884225 (Version 1)
Quarter: 2012Q4

REPORT INFORMATION
  Report Type: 
  Country: US (occurrence: US)
  Receive Date: 20121102
  Receipt Date: 20121102
  Transmission Date: 20130627
  Serious: No
  Sender: FDA-Public Use
  Company Number: US-ASTRAZENECA-2012SE12163

PATIENT
  Sex: Female

DRUGS (2)
  1. CRESTOR [Suspect]
     Indication: SENSATION OF FOREIGN BODY
     Route: 048
  2. CALCIUM WITH VITAMIN D [Concomitant]

REACTIONS (3)
  - Malaise [Unknown]
  - Memory impairment [Unknown]
  - Off label use [Unknown]
